FAERS Safety Report 24465671 (Version 1)
Quarter: 2024Q4

REPORT INFORMATION
  Report Type: Report from Study
  Country: US (occurrence: US)
  Receive Date: 20241018
  Receipt Date: 20241018
  Transmission Date: 20250115
  Serious: No
  Sender: ROCHE
  Company Number: US-ROCHE-3519206

PATIENT
  Age: 41 Year
  Sex: Female
  Weight: 133.44 kg

DRUGS (2)
  1. XOLAIR [Suspect]
     Active Substance: OMALIZUMAB
     Indication: Asthma
     Dosage: DATE OF SERVICE: 05/JAN/2024, 08/FEB/2024, 23/FEB/2024, 22/MAR/2024, 28/MAR/2024, 18/APR/2024 RECEIV
     Route: 058
  2. XOLAIR [Suspect]
     Active Substance: OMALIZUMAB

REACTIONS (2)
  - Off label use [Unknown]
  - No adverse event [Unknown]
